FAERS Safety Report 6550742-7 (Version None)
Quarter: 2010Q1

REPORT INFORMATION
  Report Type: 
  Country: None (occurrence: None)
  Receive Date: 20100125
  Receipt Date: 20100115
  Transmission Date: 20100710
  Serious: Yes (Hospitalization)
  Sender: FDA-Public Use
  Company Number: PHHY2009FR51090

PATIENT
  Sex: Female
  Weight: 71 kg

DRUGS (6)
  1. RASILEZ [Suspect]
     Indication: HYPERTENSION
     Dosage: 150 MG, UNK
     Route: 048
     Dates: start: 20091026
  2. RASILEZ [Suspect]
     Dosage: 300 MG, UNK
  3. INEGY [Concomitant]
  4. LERCAN [Concomitant]
  5. ESOMEPRAZOLE [Concomitant]
  6. ZOLPIDEM [Concomitant]

REACTIONS (5)
  - AORTIC DISSECTION [None]
  - BREAST PAIN [None]
  - CHEST PAIN [None]
  - DYSPNOEA [None]
  - PAIN IN EXTREMITY [None]
